FAERS Safety Report 18139884 (Version 1)
Quarter: 2020Q3

REPORT INFORMATION
  Report Type: Spontaneous
  Country: US (occurrence: US)
  Receive Date: 20200812
  Receipt Date: 20200812
  Transmission Date: 20201103
  Serious: No
  Sender: FDA-Public Use
  Company Number: None

PATIENT
  Age: 57 Year
  Sex: Male

DRUGS (1)
  1. DILT XR (DILTIAZEM HYDROCHLORIDE) [Suspect]
     Active Substance: DILTIAZEM HYDROCHLORIDE
     Route: 048
     Dates: start: 20200804, end: 20200804

REACTIONS (1)
  - Dizziness [None]

NARRATIVE: CASE EVENT DATE: 20200804
